FAERS Safety Report 12208359 (Version 2)
Quarter: 2016Q1

REPORT INFORMATION
  Report Type: Spontaneous
  Country: DK (occurrence: DK)
  Receive Date: 20160324
  Receipt Date: 20160330
  Transmission Date: 20160526
  Serious: Yes (Disabling)
  Sender: FDA-Public Use
  Company Number: DK-WATSON-2016-06335

PATIENT
  Age: 60 Year
  Sex: Male
  Weight: 80 kg

DRUGS (1)
  1. INDOMETACIN (UNKNOWN) [Suspect]
     Active Substance: INDOMETHACIN
     Indication: EXTRASKELETAL OSSIFICATION
     Dosage: STYRKE: 50 MG
     Route: 048
     Dates: start: 20140910

REACTIONS (2)
  - Visual impairment [Recovered/Resolved]
  - Visual acuity reduced [Recovered/Resolved]

NARRATIVE: CASE EVENT DATE: 201411
